FAERS Safety Report 8858574 (Version 2)
Quarter: 2013Q3

REPORT INFORMATION
  Report Type: Spontaneous
  Country: US (occurrence: US)
  Receive Date: 20121024
  Receipt Date: 20130911
  Transmission Date: 20140515
  Serious: Yes (Disabling, Other)
  Sender: FDA-Public Use
  Company Number: US-009507513-1210USA006894

PATIENT
  Sex: Female

DRUGS (2)
  1. FOSAMAX PLUS D [Suspect]
     Indication: ARTHRITIS
     Dosage: 70 MG, QW
     Route: 048
     Dates: start: 200311, end: 201011
  2. ALENDRONATE SODIUM [Suspect]
     Indication: ARTHRITIS
     Dosage: 70 MG, QW
     Dates: start: 200311, end: 201011

REACTIONS (6)
  - Femur fracture [Unknown]
  - Femur fracture [Unknown]
  - Low turnover osteopathy [Not Recovered/Not Resolved]
  - Injury [Not Recovered/Not Resolved]
  - Blood cholesterol increased [Unknown]
  - Off label use [Unknown]
